FAERS Safety Report 23020488 (Version 1)
Quarter: 2023Q4

REPORT INFORMATION
  Report Type: Spontaneous
  Country: US (occurrence: US)
  Receive Date: 20231003
  Receipt Date: 20231003
  Transmission Date: 20240109
  Serious: Yes (Other)
  Sender: FDA-Public Use
  Company Number: US-HIKMA PHARMACEUTICALS USA INC.-US-H14001-23-65458

PATIENT

DRUGS (3)
  1. CAPECITABINE [Suspect]
     Active Substance: CAPECITABINE
     Indication: Adenocarcinoma
     Dosage: 500 MILLIGRAM, Q12H, ON DAY 1 TO DAY 21 OF EVERY 28-DAY CYCLE
     Route: 048
     Dates: start: 202005, end: 202007
  2. GEMCITABINE [Suspect]
     Active Substance: GEMCITABINE
     Indication: Adenocarcinoma
     Dosage: 800 MILLIGRAM/SQ. METER, ON DAY 1, DAY 8, AND DAY 15
     Route: 042
     Dates: start: 202005
  3. GEMCITABINE [Suspect]
     Active Substance: GEMCITABINE
     Dosage: 700 MILLIGRAM/SQ. METER
     Route: 042
     Dates: start: 202007, end: 202007

REACTIONS (1)
  - Metastases to liver [Unknown]

NARRATIVE: CASE EVENT DATE: 20200701
